FAERS Safety Report 8508603-X (Version None)
Quarter: 2012Q3

REPORT INFORMATION
  Report Type: 
  Country: None (occurrence: None)
  Receive Date: 20120713
  Receipt Date: 20120710
  Transmission Date: 20120928
  Serious: Yes (Other)
  Sender: FDA-Public Use
  Company Number: US-PFIZER INC-2012165502

PATIENT
  Sex: Female
  Weight: 81.6 kg

DRUGS (3)
  1. CELEBREX [Suspect]
     Dosage: 100 MG, 1X/DAY (1 IN 1 DAY), DAILY
  2. XARELTO [Suspect]
     Indication: KNEE ARTHROPLASTY
     Dosage: 10 MG, 1X/DAY (1 IN 1 DAY)
     Route: 048
     Dates: start: 20111004, end: 20111014
  3. XARELTO [Suspect]
     Indication: THROMBOSIS PROPHYLAXIS

REACTIONS (1)
  - HAEMATOCHEZIA [None]
